FAERS Safety Report 8223582-0 (Version None)
Quarter: 2012Q1

REPORT INFORMATION
  Report Type: 
  Country: None (occurrence: None)
  Receive Date: 20120321
  Receipt Date: 20120316
  Transmission Date: 20120608
  Serious: Yes (Other)
  Sender: FDA-Public Use
  Company Number: US-PFIZER INC-2012051958

PATIENT
  Sex: Female
  Weight: 66.667 kg

DRUGS (4)
  1. CHANTIX [Suspect]
     Dosage: 0.5 MG, 2X/DAY
     Route: 048
     Dates: start: 20120201, end: 20120201
  2. CHANTIX [Suspect]
     Dosage: 1 MG, UNK
     Route: 048
     Dates: start: 20120201, end: 20120201
  3. CHANTIX [Suspect]
     Indication: SMOKING CESSATION THERAPY
     Dosage: 0.5 MG, 1X/DAY
     Route: 048
     Dates: start: 20120220, end: 20120201
  4. CHANTIX [Suspect]
     Dosage: 1 MG, 2X/DAY
     Route: 048
     Dates: start: 20120201, end: 20120101

REACTIONS (10)
  - DYSPEPSIA [None]
  - DECREASED APPETITE [None]
  - VOMITING [None]
  - ABDOMINAL DISCOMFORT [None]
  - ABDOMINAL PAIN UPPER [None]
  - DYSGEUSIA [None]
  - HEADACHE [None]
  - FEELING ABNORMAL [None]
  - GASTRIC ULCER [None]
  - NAUSEA [None]
